FAERS Safety Report 5895954-0 (Version None)
Quarter: 2008Q3

REPORT INFORMATION
  Report Type: 
  Country: None (occurrence: None)
  Receive Date: 20080924
  Receipt Date: 20080903
  Transmission Date: 20090109
  Serious: No
  Sender: FDA-Public Use
  Company Number: US-B.I. PHARMACEUTICALS,INC./RIDGEFIELD-2008-BP-12726BP

PATIENT
  Sex: Female
  Weight: 45 kg

DRUGS (2)
  1. MIRAPEX [Suspect]
     Indication: PARKINSON'S DISEASE
     Dosage: 4.5MG
  2. LIPITOR [Concomitant]
     Indication: HYPERTENSION
     Dosage: 10MG

REACTIONS (1)
  - SOMNOLENCE [None]
